FAERS Safety Report 6239750-3 (Version None)
Quarter: 2009Q2

REPORT INFORMATION
  Report Type: 
  Country: None (occurrence: None)
  Receive Date: 20090619
  Receipt Date: 20090608
  Transmission Date: 20091009
  Serious: Yes (Hospitalization)
  Sender: FDA-Public Use
  Company Number: ADR4102009

PATIENT
  Age: 79 Year
  Sex: Male

DRUGS (8)
  1. RAMIPRIL [Suspect]
     Indication: RENAL FAILURE CHRONIC
     Dosage: 2.5 MG, ORAL
     Route: 048
  2. THEOPHYLLINE [Concomitant]
  3. FUROSEMIDE (40 MG) [Concomitant]
  4. XIPAMIDE (20 MG) [Concomitant]
  5. FALICARD ^DRESDEN^ (240 MG) [Concomitant]
  6. PANTOZOL (40 MG) [Concomitant]
  7. DOMPERIDONE (10 MG) [Concomitant]
  8. CAPTOPRIL [Concomitant]

REACTIONS (2)
  - HYPOTENSION [None]
  - TACHYCARDIA [None]
